FAERS Safety Report 18257333 (Version 1)
Quarter: 2020Q3

REPORT INFORMATION
  Report Type: Spontaneous
  Country: None (occurrence: US)
  Receive Date: 20200505
  Receipt Date: 20200505
  Transmission Date: 20201103
  Serious: Yes (Other)
  Sender: FDA-Public Use
  Company Number: None

PATIENT
  Age: 4 Decade
  Sex: Male

DRUGS (5)
  1. INTERFERON ALFA?1B [Suspect]
     Active Substance: INTERFERON ALFA-1B
     Indication: COVID-19
     Dates: start: 2020
  2. RIBAVIRIN. [Suspect]
     Active Substance: RIBAVIRIN
     Indication: COVID-19
     Route: 042
     Dates: start: 2020
  3. CEFOPERAZONE?TAZOBACTAM [Suspect]
     Active Substance: CEFOPERAZONE\TAZOBACTAM SODIUM
     Indication: COVID-19
     Route: 042
     Dates: start: 2020
  4. THEOPHYLLINE [Suspect]
     Active Substance: THEOPHYLLINE ANHYDROUS
     Indication: COVID-19
     Route: 042
     Dates: start: 2020
  5. AMBROXOL [Suspect]
     Active Substance: AMBROXOL
     Indication: COVID-19
     Route: 042
     Dates: start: 2020

REACTIONS (9)
  - Angina pectoris [None]
  - Product use issue [None]
  - Pneumomediastinum [None]
  - Product use in unapproved indication [None]
  - Subcutaneous emphysema [None]
  - Lung consolidation [None]
  - Pneumonia [None]
  - Palpitations [None]
  - Wheezing [None]
